FAERS Safety Report 13662464 (Version 1)
Quarter: 2017Q2

REPORT INFORMATION
  Report Type: Report from Study
  Country: US (occurrence: US)
  Receive Date: 20170617
  Receipt Date: 20170617
  Transmission Date: 20170830
  Serious: Yes (Death, Hospitalization)
  Sender: FDA-Public Use
  Company Number: US-TORRENT-00003088

PATIENT
  Age: 49 Year
  Sex: Female

DRUGS (14)
  1. BUPROPION. [Suspect]
     Active Substance: BUPROPION
  2. OMEPRAZOLE. [Suspect]
     Active Substance: OMEPRAZOLE
  3. QUETIAPINE. [Suspect]
     Active Substance: QUETIAPINE
  4. DIAZEPAM. [Suspect]
     Active Substance: DIAZEPAM
  5. IBUPROFEN. [Suspect]
     Active Substance: IBUPROFEN
  6. HYDROCHLOROTHIAZIDE. [Suspect]
     Active Substance: HYDROCHLOROTHIAZIDE
  7. GABAPENTIN. [Suspect]
     Active Substance: GABAPENTIN
  8. MELATONIN [Suspect]
     Active Substance: MELATONIN
  9. RANITIDINE. [Suspect]
     Active Substance: RANITIDINE
  10. BACLOFEN. [Suspect]
     Active Substance: BACLOFEN
  11. SIMVASTATIN. [Suspect]
     Active Substance: SIMVASTATIN
  12. VALSARTAN. [Suspect]
     Active Substance: VALSARTAN
  13. TRAZODONE [Suspect]
     Active Substance: TRAZODONE HYDROCHLORIDE
  14. LEVOTHYROXINE SODIUM. [Suspect]
     Active Substance: LEVOTHYROXINE SODIUM

REACTIONS (3)
  - Toxicity to various agents [Fatal]
  - Intentional overdose [None]
  - Completed suicide [Fatal]
